FAERS Safety Report 10417659 (Version 1)
Quarter: 2014Q3

REPORT INFORMATION
  Report Type: Spontaneous
  Country: US (occurrence: None)
  Receive Date: 20140709
  Receipt Date: 20140709
  Transmission Date: 20150326
  Serious: No
  Sender: FDA-Public Use
  Company Number: 2014TUS001597

PATIENT
  Sex: Female

DRUGS (1)
  1. BRINTELLIX [Suspect]
     Active Substance: VORTIOXETINE HYDROBROMIDE
     Indication: MAJOR DEPRESSION
     Route: 048
     Dates: end: 201402

REACTIONS (4)
  - Feeling abnormal [None]
  - Mental impairment [None]
  - Pruritus [None]
  - Agitation [None]

NARRATIVE: CASE EVENT DATE: 2014
